FAERS Safety Report 8796014 (Version 1)
Quarter: 2012Q4

REPORT INFORMATION
  Report Type: Report from Study
  Country: US (occurrence: US)
  Receive Date: 20120919
  Receipt Date: 20120919
  Transmission Date: 20130627
  Serious: Yes (Other)
  Sender: FDA-Public Use
  Company Number: US-ELI_LILLY_AND_COMPANY-US201209002691

PATIENT
  Age: 62 Year
  Sex: Female
  Weight: 56.69 kg

DRUGS (26)
  1. OLANZAPINE [Suspect]
     Dosage: 300 mg, UNK
     Route: 030
     Dates: start: 20120213
  2. OLANZAPINE [Suspect]
     Dosage: 300 mg, UNK
     Route: 030
     Dates: start: 20120227
  3. OLANZAPINE [Suspect]
     Dosage: 300 mg, UNK
     Route: 030
     Dates: start: 20120312
  4. OLANZAPINE [Suspect]
     Dosage: 300 mg, UNK
     Route: 030
     Dates: start: 20120326
  5. OLANZAPINE [Suspect]
     Dosage: 300 mg, UNK
     Route: 030
     Dates: start: 20120409
  6. OLANZAPINE [Suspect]
     Dosage: 300 mg, UNK
     Route: 030
     Dates: start: 20120423
  7. OLANZAPINE [Suspect]
     Dosage: 300 mg, UNK
     Route: 030
     Dates: start: 20120508
  8. OLANZAPINE [Suspect]
     Dosage: 300 mg, UNK
     Route: 030
     Dates: start: 20120521
  9. OLANZAPINE [Suspect]
     Dosage: 300 mg, UNK
     Route: 030
     Dates: start: 20120604
  10. OLANZAPINE [Suspect]
     Dosage: 300 mg, UNK
     Route: 030
     Dates: start: 20120619
  11. OLANZAPINE [Suspect]
     Dosage: 300 mg, UNK
     Route: 030
     Dates: start: 20120702
  12. OLANZAPINE [Suspect]
     Dosage: 300 mg, UNK
     Route: 030
     Dates: start: 20120717
  13. OLANZAPINE [Suspect]
     Dosage: 300 mg, UNK
     Route: 030
     Dates: start: 20120806
  14. OLANZAPINE [Suspect]
     Dosage: 300 mg, UNK
     Route: 030
     Dates: start: 20120820
  15. OLANZAPINE [Suspect]
     Dosage: 300 mg, UNK
     Route: 030
     Dates: start: 20120906
  16. ZOCOR [Concomitant]
     Dosage: 20 mg, UNK
  17. METFORMIN [Concomitant]
     Dosage: 500 mg, UNK
  18. HYDROCHLOROTHIAZIDE [Concomitant]
     Dosage: 12.5 mg, UNK
  19. LIPITOR [Concomitant]
     Dosage: 20 mg, UNK
  20. NIASPAN [Concomitant]
     Dosage: 500 mg, UNK
  21. ACIPHEX [Concomitant]
     Dosage: 20 mg, UNK
  22. ADVAIR [Concomitant]
     Dosage: UNK
  23. ALBUTEROL [Concomitant]
     Dosage: UNK
  24. TRAZODONE [Concomitant]
     Dosage: 50 mg, UNK
  25. ZANTAC [Concomitant]
     Dosage: 150 DF, UNK
  26. ZOCOR [Concomitant]
     Dosage: 20 mg, UNK

REACTIONS (9)
  - Dizziness [Recovered/Resolved]
  - Sedation [Recovered/Resolved]
  - Dysarthria [Recovered/Resolved]
  - Somnolence [Recovered/Resolved]
  - Fatigue [None]
  - Subdural haematoma [None]
  - Confusional state [None]
  - Normal pressure hydrocephalus [None]
  - Cerebral atrophy [None]
